FAERS Safety Report 17639158 (Version 16)
Quarter: 2022Q4

REPORT INFORMATION
  Report Type: Report from Study
  Country: JP (occurrence: None)
  Receive Date: 20200407
  Receipt Date: 20221025
  Transmission Date: 20230113
  Serious: Yes (Hospitalization)
  Sender: FDA-Public Use
  Company Number: JP-ROCHE-2574487

PATIENT
  Age: 59 Year
  Sex: Male
  Weight: 91.6 kg

DRUGS (44)
  1. ATEZOLIZUMAB [Suspect]
     Active Substance: ATEZOLIZUMAB
     Indication: Lung neoplasm malignant
     Dosage: ON 20/FEB/2020, MOST RECENT DOSE BLINDED ATEZOLIZUMAB
     Route: 041
     Dates: start: 20191219
  2. CISPLATIN [Suspect]
     Active Substance: CISPLATIN
     Indication: Lung neoplasm malignant
     Dosage: MOST RECENT DOSE 123.6 MG ON 20/FEB/2020
     Route: 042
     Dates: start: 20191219
  3. PEMETREXED [Suspect]
     Active Substance: PEMETREXED
     Indication: Lung neoplasm malignant
     Dosage: ON 20/FEB/2020 MOST RECENT DOSE 1030 MG
     Route: 042
     Dates: start: 20191219
  4. LOXOPROFEN SODIUM DIHYDRATE [Concomitant]
     Active Substance: LOXOPROFEN SODIUM DIHYDRATE
     Indication: Pain
     Route: 048
     Dates: start: 20191210
  5. MAGNESIUM OXIDE [Concomitant]
     Active Substance: MAGNESIUM OXIDE
     Indication: Prophylaxis
     Route: 048
     Dates: start: 20191218
  6. MAGNESIUM OXIDE [Concomitant]
     Active Substance: MAGNESIUM OXIDE
     Indication: Constipation prophylaxis
     Route: 048
     Dates: start: 20200430
  7. HEPARINOID [Concomitant]
     Indication: Xeroderma
     Route: 061
     Dates: start: 20200109, end: 20200518
  8. DOMPERIDONE [Concomitant]
     Active Substance: DOMPERIDONE
     Indication: Prophylaxis of nausea and vomiting
     Route: 048
     Dates: start: 20200131
  9. APREPITANT [Concomitant]
     Active Substance: APREPITANT
     Indication: Premedication
     Route: 048
     Dates: start: 20200220, end: 20200220
  10. APREPITANT [Concomitant]
     Active Substance: APREPITANT
     Route: 048
     Dates: start: 20200221, end: 20200222
  11. DEXAMETHASONE [Concomitant]
     Active Substance: DEXAMETHASONE
     Indication: Drug hypersensitivity
     Route: 048
     Dates: start: 20200220, end: 20200223
  12. POTASSIUM ASPARTATE ANHYDROUS [Concomitant]
     Active Substance: POTASSIUM ASPARTATE ANHYDROUS
     Indication: Premedication
     Route: 042
     Dates: start: 20200220, end: 20200220
  13. GRANISETRON HYDROCHLORIDE [Concomitant]
     Active Substance: GRANISETRON HYDROCHLORIDE
     Indication: Premedication
     Route: 042
     Dates: start: 20200220, end: 20200220
  14. GRANISETRON HYDROCHLORIDE [Concomitant]
     Active Substance: GRANISETRON HYDROCHLORIDE
     Indication: Nausea
     Route: 048
     Dates: start: 20200608, end: 20200622
  15. DEXAMETHASONE SODIUM PHOSPHATE [Concomitant]
     Active Substance: DEXAMETHASONE SODIUM PHOSPHATE
     Indication: Premedication
     Route: 042
     Dates: start: 20200220, end: 20200220
  16. FUROSEMIDE [Concomitant]
     Active Substance: FUROSEMIDE
     Indication: Premedication
     Route: 042
     Dates: start: 20200220, end: 20200220
  17. CHLORPHENIRAMINE MALEATE [Concomitant]
     Active Substance: CHLORPHENIRAMINE MALEATE
     Indication: Drug hypersensitivity
     Route: 042
     Dates: start: 20200220, end: 20200220
  18. CEFAZOLIN SODIUM [Concomitant]
     Active Substance: CEFAZOLIN SODIUM
     Indication: Infection prophylaxis
     Route: 042
     Dates: start: 20200427, end: 20200427
  19. VONOPRAZAN FUMARATE [Concomitant]
     Active Substance: VONOPRAZAN FUMARATE
     Indication: Gastrointestinal disorder prophylaxis
     Route: 048
     Dates: start: 20200427, end: 20220511
  20. TRAMADOL HYDROCHLORIDE [Concomitant]
     Active Substance: TRAMADOL HYDROCHLORIDE
     Indication: Procedural pain
     Route: 048
     Dates: start: 20200428, end: 20200712
  21. TRAMADOL HYDROCHLORIDE [Concomitant]
     Active Substance: TRAMADOL HYDROCHLORIDE
     Route: 048
     Dates: start: 20200713
  22. SENNOSIDES A AND B [Concomitant]
     Active Substance: SENNOSIDES A AND B
     Indication: Constipation
     Route: 048
     Dates: start: 20200430, end: 20200501
  23. PREGABALIN [Concomitant]
     Active Substance: PREGABALIN
     Indication: Procedural pain
     Route: 048
     Dates: start: 20200430, end: 20200608
  24. ACETAMINOPHEN\TRAMADOL HYDROCHLORIDE [Concomitant]
     Active Substance: ACETAMINOPHEN\TRAMADOL HYDROCHLORIDE
     Indication: Procedural pain
     Dates: start: 20200427, end: 20200608
  25. ROPIVACAINE HYDROCHLORIDE [Concomitant]
     Active Substance: ROPIVACAINE HYDROCHLORIDE
     Indication: Procedural pain
     Dates: start: 20200430, end: 20200430
  26. ZOLPIDEM TARTRATE [Concomitant]
     Active Substance: ZOLPIDEM TARTRATE
     Indication: Prophylaxis
     Route: 048
     Dates: start: 20200427, end: 20200427
  27. ACETAMINOPHEN [Concomitant]
     Active Substance: ACETAMINOPHEN
     Indication: Procedural pain
     Route: 042
     Dates: start: 20200428, end: 20200428
  28. LEVOFLOXACIN HEMIHYDRATE [Concomitant]
     Active Substance: LEVOFLOXACIN
     Indication: Infection prophylaxis
     Route: 048
     Dates: start: 20200508, end: 20200514
  29. MIYA-BM [Concomitant]
     Active Substance: CLOSTRIDIUM BUTYRICUM SPORES STRAIN M-55
     Dates: start: 20200508, end: 20200514
  30. TRANSAMIN [Concomitant]
     Active Substance: TRANEXAMIC ACID
     Indication: Radiation oesophagitis
     Route: 048
     Dates: start: 20200608, end: 20200622
  31. GRANISETRON [Concomitant]
     Active Substance: GRANISETRON
     Indication: Nausea
     Route: 048
     Dates: start: 20200608, end: 20200622
  32. DIPHENHYDRAMINE HYDROCHLORIDE\HYDROCORTISONE ACETATE\NEOMYCIN SULFATE [Concomitant]
     Active Substance: DIPHENHYDRAMINE HYDROCHLORIDE\HYDROCORTISONE ACETATE\NEOMYCIN SULFATE
     Indication: Dermatitis contact
     Route: 061
     Dates: start: 20200608
  33. KETOPROFEN [Concomitant]
     Active Substance: KETOPROFEN
     Indication: Back pain
     Route: 061
     Dates: start: 20200713
  34. RAMUCIRUMAB [Concomitant]
     Active Substance: RAMUCIRUMAB
     Indication: Neoplasm malignant
     Dates: start: 20201007, end: 20201216
  35. DOCETAXEL [Concomitant]
     Active Substance: DOCETAXEL
     Indication: Neoplasm malignant
     Dates: start: 20201007, end: 20201216
  36. PEMBROLIZUMAB [Concomitant]
     Active Substance: PEMBROLIZUMAB
     Indication: Neoplasm malignant
     Dates: start: 20210106, end: 20210825
  37. AMPICILLIN SODIUM\SULBACTAM SODIUM [Concomitant]
     Active Substance: AMPICILLIN SODIUM\SULBACTAM SODIUM
     Indication: Infection prophylaxis
     Route: 042
     Dates: start: 20200413, end: 20200420
  38. STRONG RESTAMIN CORTISONE [Concomitant]
     Indication: Dermatitis contact
     Route: 061
     Dates: start: 20200608
  39. KETOPROFEN [Concomitant]
     Active Substance: KETOPROFEN
     Indication: Back pain
     Route: 061
     Dates: start: 20200713
  40. PEMETREXED [Concomitant]
     Active Substance: PEMETREXED
     Indication: Neoplasm malignant
     Dates: start: 20210922, end: 20211125
  41. PEMETREXED [Concomitant]
     Active Substance: PEMETREXED
     Dates: start: 20211216, end: 20220324
  42. CARBOPLATIN [Concomitant]
     Active Substance: CARBOPLATIN
     Indication: Neoplasm malignant
     Dates: start: 20210922, end: 20211125
  43. TS-1 [Concomitant]
     Active Substance: GIMERACIL\OTERACIL\TEGAFUR
     Indication: Neoplasm malignant
     Dates: start: 20211216, end: 20220324
  44. AMRUBICIN HYDROCHLORIDE [Concomitant]
     Active Substance: AMRUBICIN HYDROCHLORIDE
     Indication: Neoplasm malignant
     Dates: start: 20220620, end: 20220713

REACTIONS (2)
  - Venous thrombosis [Not Recovered/Not Resolved]
  - Pulmonary embolism [Not Recovered/Not Resolved]

NARRATIVE: CASE EVENT DATE: 20200321
